FAERS Safety Report 10195130 (Version 1)
Quarter: 2014Q2

REPORT INFORMATION
  Report Type: Spontaneous
  Country: US (occurrence: US)
  Receive Date: 20140526
  Receipt Date: 20140526
  Transmission Date: 20141212
  Serious: No
  Sender: FDA-Public Use
  Company Number: US-ASTRAZENECA-2014SE33145

PATIENT
  Sex: Female

DRUGS (3)
  1. ASPIRIN [Suspect]
     Route: 065
  2. BRILINTA [Suspect]
     Route: 048
     Dates: start: 20140426
  3. BLOOD PRESSURE MEDICATION [Concomitant]

REACTIONS (2)
  - Dementia [Not Recovered/Not Resolved]
  - Intentional product misuse [Unknown]
